FAERS Safety Report 25494404 (Version 1)
Quarter: 2025Q2

REPORT INFORMATION
  Report Type: Spontaneous
  Country: DE (occurrence: DE)
  Receive Date: 20250630
  Receipt Date: 20250630
  Transmission Date: 20250716
  Serious: Yes (Other)
  Sender: ESPERION THERAPEUTICS
  Company Number: DE-DAIICHI SANKYO EUROPE GMBH-DS-2025-149052-DE

PATIENT

DRUGS (4)
  1. BEMPEDOIC ACID [Interacting]
     Active Substance: BEMPEDOIC ACID
     Indication: Type IIa hyperlipidaemia
     Route: 065
     Dates: start: 202305
  2. FENOFIBRATE [Interacting]
     Active Substance: FENOFIBRATE
     Indication: Type IIa hyperlipidaemia
     Route: 065
  3. EZETIMIBE [Concomitant]
     Active Substance: EZETIMIBE
     Indication: Type IIa hyperlipidaemia
     Route: 065
  4. EVOLOCUMAB [Concomitant]
     Active Substance: EVOLOCUMAB
     Indication: Type IIa hyperlipidaemia
     Route: 065

REACTIONS (2)
  - High density lipoprotein decreased [Recovered/Resolved]
  - Drug interaction [Recovered/Resolved]
